FAERS Safety Report 4599185-6 (Version None)
Quarter: 2005Q1

REPORT INFORMATION
  Report Type: 
  Country: None (occurrence: None)
  Receive Date: 20050207
  Receipt Date: 20041015
  Transmission Date: 20050727
  Serious: No
  Sender: FDA-Public Use
  Company Number: 2004USFACT00084

PATIENT
  Age: 82 Year
  Sex: Female
  Weight: 78.9 kg

DRUGS (9)
  1. FACTIVE [Suspect]
     Indication: RESPIRATORY TRACT INFECTION BACTERIAL
     Dosage: 320.00 MG, QD, ORAL
     Route: 048
     Dates: start: 20040928, end: 20041002
  2. DEMADEX [Concomitant]
  3. ALTACE [Concomitant]
  4. ZAROXOLYN (METOLZAONE) [Concomitant]
  5. ASPIRIN [Concomitant]
  6. TOPROL-XL [Concomitant]
  7. ZOCOR [Concomitant]
  8. FERROUS SULFATE TAB [Concomitant]
  9. AMARYL [Concomitant]

REACTIONS (1)
  - RASH GENERALISED [None]
